FAERS Safety Report 15169464 (Version 1)
Quarter: 2018Q3

REPORT INFORMATION
  Report Type: Spontaneous
  Country: US (occurrence: US)
  Receive Date: 20180720
  Receipt Date: 20180720
  Transmission Date: 20181010
  Serious: No
  Sender: FDA-Public Use
  Company Number: US-LUPIN PHARMACEUTICALS INC.-2017-03435

PATIENT
  Age: 80 Year
  Sex: Female
  Weight: 58.96 kg

DRUGS (1)
  1. GAVILYTE ? N [Suspect]
     Active Substance: POLYETHYLENE GLYCOL 3350\POTASSIUM CHLORIDE\SODIUM BICARBONATE\SODIUM CHLORIDE
     Indication: COLONOSCOPY
     Dosage: 1 DF, QD
     Route: 048
     Dates: start: 20170613, end: 20170613

REACTIONS (2)
  - Sensitivity of teeth [Not Recovered/Not Resolved]
  - Toothache [Not Recovered/Not Resolved]

NARRATIVE: CASE EVENT DATE: 20170613
